FAERS Safety Report 24146530 (Version 1)
Quarter: 2024Q3

REPORT INFORMATION
  Report Type: Spontaneous
  Country: CA (occurrence: None)
  Receive Date: 20240726
  Receipt Date: 20240726
  Transmission Date: 20241017
  Serious: Yes (Hospitalization)
  Sender: Public
  Company Number: None

PATIENT
  Age: 68 Year
  Sex: Female

DRUGS (19)
  1. PEMBROLIZUMAB [Suspect]
     Active Substance: PEMBROLIZUMAB
     Indication: Lung neoplasm malignant
     Dosage: OTHER FREQUENCY : D1, Q21 DAYS;?
     Route: 042
     Dates: start: 20210915, end: 20211005
  2. CANDESARTAN [Concomitant]
     Active Substance: CANDESARTAN
  3. EMPAGLIFLOZIN [Concomitant]
     Active Substance: EMPAGLIFLOZIN
  4. ONDANSETRON [Concomitant]
     Active Substance: ONDANSETRON
  5. DIMENHYDRINATE [Concomitant]
     Active Substance: DIMENHYDRINATE
  6. TRIMETHOPRIM [Concomitant]
     Active Substance: TRIMETHOPRIM
  7. SENNOSIDES [Concomitant]
     Active Substance: SENNOSIDES
  8. METOPROLOL [Concomitant]
     Active Substance: METOPROLOL
  9. METFORMIN [Concomitant]
     Active Substance: METFORMIN HYDROCHLORIDE
  10. SIMVASTATIN [Concomitant]
     Active Substance: SIMVASTATIN
  11. METOCLOPRAMIDE [Concomitant]
     Active Substance: METOCLOPRAMIDE
  12. NITROGLYCERIN [Concomitant]
     Active Substance: NITROGLYCERIN
  13. LANTUS [Concomitant]
     Active Substance: INSULIN GLARGINE
  14. HYDROCHLOROTHIAZIDE [Concomitant]
     Active Substance: HYDROCHLOROTHIAZIDE
  15. FERROUS GLUCONATE [Concomitant]
     Active Substance: FERROUS GLUCONATE
  16. ALBUTEROL [Concomitant]
     Active Substance: ALBUTEROL
  17. HYDROMORPHONE [Concomitant]
     Active Substance: HYDROMORPHONE
  18. FLUTICASONE [Concomitant]
     Active Substance: FLUTICASONE
  19. PANTOPRAZOLE [Concomitant]
     Active Substance: PANTOPRAZOLE

REACTIONS (11)
  - Myocardial infarction [None]
  - Pneumothorax [None]
  - Diarrhoea [None]
  - Asthenia [None]
  - Lethargy [None]
  - Pallor [None]
  - Hypotension [None]
  - Renal impairment [None]
  - Dehydration [None]
  - Colitis [None]
  - Gallbladder enlargement [None]

NARRATIVE: CASE EVENT DATE: 20211015
